FAERS Safety Report 5899348-3 (Version None)
Quarter: 2008Q3

REPORT INFORMATION
  Report Type: 
  Country: None (occurrence: None)
  Receive Date: 20080924
  Receipt Date: 20080915
  Transmission Date: 20090109
  Serious: Yes (Hospitalization)
  Sender: FDA-Public Use
  Company Number: 2008BI022958

PATIENT
  Age: 27 Year
  Sex: Male
  Weight: 113.3993 kg

DRUGS (3)
  1. TYSABRI [Suspect]
     Indication: MULTIPLE SCLEROSIS
     Dosage: 300 MG; QM; IV
     Route: 042
     Dates: start: 20080502, end: 20080725
  2. LISINOPRIL [Concomitant]
  3. SYNTHROID [Concomitant]

REACTIONS (15)
  - ABNORMAL BEHAVIOUR [None]
  - ANAPHYLACTIC REACTION [None]
  - CHILLS [None]
  - COGNITIVE DISORDER [None]
  - CONDITION AGGRAVATED [None]
  - CONFUSIONAL STATE [None]
  - DRUG HYPERSENSITIVITY [None]
  - HEMIPARESIS [None]
  - HYPERHIDROSIS [None]
  - INCONTINENCE [None]
  - LYMPHOMA [None]
  - MULTIPLE SCLEROSIS [None]
  - PERSONALITY CHANGE [None]
  - PROGRESSIVE MULTIFOCAL LEUKOENCEPHALOPATHY [None]
  - URTICARIA [None]
